FAERS Safety Report 8885398 (Version 1)
Quarter: 2012Q4

REPORT INFORMATION
  Report Type: 
  Country: GB (occurrence: GB)
  Receive Date: 20121102
  Receipt Date: 20121102
  Transmission Date: 20130627
  Serious: Yes (Hospitalization)
  Sender: FDA-Public Use
  Company Number: GB-BAXTER-2012BAX021618

PATIENT
  Age: 79 Year
  Sex: Male
  Weight: 59.6 kg

DRUGS (11)
  1. CYCLOPHOSPHAMIDE [Suspect]
     Indication: MULTIPLE MYELOMA
     Route: 048
     Dates: start: 20120717, end: 20120728
  2. CYCLOPHOSPHAMIDE [Suspect]
     Route: 048
     Dates: start: 20120821
  3. DEXAMETHASONE [Suspect]
     Indication: MULTIPLE MYELOMA
     Route: 048
     Dates: start: 20120717, end: 20120728
  4. DEXAMETHASONE [Suspect]
     Route: 048
     Dates: start: 20120821
  5. VELCADE [Suspect]
     Indication: MULTIPLE MYELOMA
     Route: 058
     Dates: start: 20120717, end: 20120728
  6. VELCADE [Suspect]
     Route: 058
     Dates: start: 20120821
  7. AMLODIPINE [Concomitant]
     Indication: HYPERTENSION
     Route: 048
  8. CLODRONIC ACID [Concomitant]
     Indication: DRUG USE FOR UNKNOWN INDICATION
     Route: 048
  9. ERYTHROPOIETIN [Concomitant]
     Indication: MULTIPLE MYELOMA
     Route: 065
  10. SIMVASTATIN [Concomitant]
     Indication: DRUG USE FOR UNKNOWN INDICATION
     Route: 048
  11. VALSARTAN [Concomitant]
     Indication: HYPERTENSION
     Route: 048

REACTIONS (4)
  - Orthostatic hypotension [Recovered/Resolved]
  - Peripheral sensory neuropathy [Not Recovered/Not Resolved]
  - Haemoglobin decreased [None]
  - Platelet count decreased [None]
